FAERS Safety Report 5491455-2 (Version None)
Quarter: 2007Q4

REPORT INFORMATION
  Report Type: 
  Country: None (occurrence: None)
  Receive Date: 20071018
  Receipt Date: 20071005
  Transmission Date: 20080405
  Serious: Yes (Hospitalization)
  Sender: FDA-Public Use
  Company Number: 2007S1009947

PATIENT
  Age: 62 Year
  Sex: Male

DRUGS (10)
  1. VERAPAMIL [Suspect]
     Dosage: 360 MG, DAILY;
  2. ATENOLOL [Suspect]
     Dosage: 25 MG, TWICE A DAY;
  3. CLONIDINE [Suspect]
     Dosage: 0.4 MG; WEEKLY; TRANSDERMAL
     Route: 062
  4. IRBESARTAN [Suspect]
     Dosage: 150 MG, TWICE A DAY;
  5. TERAZOSIN HYDROCHLORIDE [Suspect]
     Dosage: 5 MG; DAILY;
  6. FUROSEMIDE [Suspect]
     Dosage: 80 MG; DAILY;
  7. METOLAZONE [Suspect]
     Dosage: 2.5 MG; DAILY;
  8. INSULIN [Suspect]
  9. NAPROXEN [Suspect]
  10. POTASSIUM CHLORIDE [Suspect]
     Dosage: 20 MEQ; DAILY;

REACTIONS (18)
  - ANGINA PECTORIS [None]
  - BLOOD CREATININE INCREASED [None]
  - BLOOD POTASSIUM INCREASED [None]
  - BLOOD UREA INCREASED [None]
  - COLD SWEAT [None]
  - CREPITATIONS [None]
  - HAEMATOCRIT DECREASED [None]
  - HAEMODIALYSIS [None]
  - HAEMOGLOBIN DECREASED [None]
  - HYPERHIDROSIS [None]
  - OEDEMA [None]
  - ORTHOPNOEA [None]
  - PALLOR [None]
  - SINUS BRADYCARDIA [None]
  - SYNCOPE [None]
  - URINE OUTPUT DECREASED [None]
  - WEIGHT INCREASED [None]
  - WHEEZING [None]
